FAERS Safety Report 8837537 (Version 1)
Quarter: 2012Q4

REPORT INFORMATION
  Report Type: 
  Country: US (occurrence: US)
  Receive Date: 20121012
  Receipt Date: 20121012
  Transmission Date: 20130627
  Serious: Yes (Hospitalization, Other)
  Sender: FDA-Public Use
  Company Number: US-PFIZER INC-2012252218

PATIENT
  Age: 41 Year
  Sex: Female
  Weight: 86.17 kg

DRUGS (5)
  1. LYRICA [Suspect]
     Indication: NEUROPATHY PERIPHERAL
     Dosage: 150 mg, 3x/day
     Route: 048
  2. LYRICA [Suspect]
     Indication: SCIATICA
     Dosage: 150 mg, 4x/day
     Route: 048
  3. LYRICA [Suspect]
     Indication: FIBROMYALGIA
     Dosage: 150 mg, UNK
     Route: 048
  4. IBUPROFEN [Concomitant]
     Dosage: UNK
  5. LISINOPRIL [Concomitant]
     Indication: HYPERTENSION
     Dosage: UNK

REACTIONS (5)
  - Ewing^s sarcoma [Unknown]
  - Neoplasm [Unknown]
  - Osteoarthritis [Unknown]
  - Pain [Unknown]
  - Drug ineffective [Unknown]
